FAERS Safety Report 9332912 (Version 6)
Quarter: 2013Q3

REPORT INFORMATION
  Report Type: Report from Study
  Country: GB (occurrence: GB)
  Receive Date: 20130606
  Receipt Date: 20130916
  Transmission Date: 20140515
  Serious: Yes (Hospitalization)
  Sender: FDA-Public Use
  Company Number: GB-ROCHE-1231153

PATIENT
  Age: 69 Year
  Sex: Female
  Weight: 73.8 kg

DRUGS (2)
  1. VEMURAFENIB [Suspect]
     Indication: METASTATIC MALIGNANT MELANOMA
     Dosage: MOST RECENT DOSE ON 27/MAY/2013
     Route: 048
     Dates: start: 20120509, end: 20130605
  2. VEMURAFENIB [Suspect]
     Dosage: DATE OF LAST DOSE PRIOR TO SAE: 08/MAY/2012
     Route: 048
     Dates: start: 20120314

REACTIONS (1)
  - Pulmonary embolism [Recovered/Resolved]
